FAERS Safety Report 25527058 (Version 1)
Quarter: 2025Q3

REPORT INFORMATION
  Report Type: Spontaneous
  Country: CN (occurrence: CN)
  Receive Date: 20250708
  Receipt Date: 20250708
  Transmission Date: 20251021
  Serious: Yes (Hospitalization, Other)
  Sender: SANDOZ
  Company Number: CN-SANDOZ-SDZ2025CN047129

PATIENT
  Age: 68 Year
  Sex: Female
  Weight: 79 kg

DRUGS (5)
  1. ZOLEDRONIC ACID [Suspect]
     Active Substance: ZOLEDRONIC ACID
     Indication: Osteoporosis
     Dosage: 5 MG, QD
     Route: 041
     Dates: start: 20250626, end: 20250626
  2. CAPTOPRIL [Concomitant]
     Active Substance: CAPTOPRIL
     Indication: Hypotension
     Route: 048
  3. CAPTOPRIL [Concomitant]
     Active Substance: CAPTOPRIL
     Route: 060
  4. MANNITOL [Concomitant]
     Active Substance: MANNITOL
     Indication: Reduction of increased intracranial pressure
     Route: 042
  5. METOPROLOL TARTRATE [Concomitant]
     Active Substance: METOPROLOL TARTRATE
     Indication: Arrhythmia
     Dosage: 25 MG, QD
     Route: 048

REACTIONS (20)
  - Intracranial pressure increased [Recovering/Resolving]
  - Cardiac failure acute [Recovering/Resolving]
  - Hypertensive encephalopathy [Recovering/Resolving]
  - Irritability [Recovering/Resolving]
  - Dysarthria [Recovering/Resolving]
  - Cyanosis [Recovering/Resolving]
  - Breath sounds abnormal [Recovering/Resolving]
  - Wheezing [Recovering/Resolving]
  - Rales [Recovering/Resolving]
  - Choreoathetosis [Recovering/Resolving]
  - Supraventricular tachycardia [Recovering/Resolving]
  - Palpitations [Recovering/Resolving]
  - Asthma [Recovering/Resolving]
  - Confusional state [Recovering/Resolving]
  - Nausea [Recovering/Resolving]
  - Dizziness [Recovering/Resolving]
  - Vomiting [Recovering/Resolving]
  - Dyspnoea [Recovering/Resolving]
  - Headache [Recovering/Resolving]
  - Hypertension [Recovering/Resolving]

NARRATIVE: CASE EVENT DATE: 20250626
